FAERS Safety Report 5132930-X (Version None)
Quarter: 2006Q4

REPORT INFORMATION
  Report Type: 
  Country: None (occurrence: None)
  Receive Date: 20061017
  Receipt Date: 20061004
  Transmission Date: 20070319
  Serious: Yes (Hospitalization, Other)
  Sender: FDA-Public Use
  Company Number: HQWYE621104APR06

PATIENT
  Age: 20 Year
  Sex: Male

DRUGS (11)
  1. RAPAMUNE [Suspect]
     Indication: PROPHYLAXIS AGAINST TRANSPLANT REJECTION
     Dosage: 7 MG 1X PER 1 DAY ORAL
     Route: 048
     Dates: start: 20051226, end: 20060331
  2. MYCOPHENOLATE MOFETIL [Concomitant]
  3. MYCOPHENOLATE MOFETIL [Concomitant]
  4. PREDNISOLONE [Concomitant]
  5. PHOSPHATES (SODIUM PHOSPHATE/SODIUM PHOSPHATE MONOBASIC) [Concomitant]
  6. SULFAMETHOXAZOLE + TRIMETHOPRIM [Concomitant]
  7. RANITIDINE [Concomitant]
  8. RAMIPRIL [Concomitant]
  9. AMLODIPINE [Concomitant]
  10. DOXAZOSIN (DOXAZOSIN) [Concomitant]
  11. FUROSEMIDE [Concomitant]

REACTIONS (1)
  - KIDNEY TRANSPLANT REJECTION [None]
